FAERS Safety Report 9176118 (Version 1)
Quarter: 2012Q4

REPORT INFORMATION
  Report Type: 
  Country: US (occurrence: US)
  Receive Date: 20120918
  Receipt Date: 20120918
  Transmission Date: 20130627
  Serious: Yes (Hospitalization, Other)
  Sender: FDA-Public Use
  Company Number: US-RB-044587-12

PATIENT
  Sex: Female

DRUGS (4)
  1. SUBOXONE UNSPECIFIED [Suspect]
     Indication: DRUG DEPENDENCE
     Route: 064
     Dates: start: 201107
  2. BUPRENORPHINE [Suspect]
     Indication: DRUG DEPENDENCE
     Route: 064
     Dates: end: 20120401
  3. LEVOXYL [Suspect]
     Indication: HYPOTHYROIDISM
     Dosage: 200 mg daily
     Route: 064
     Dates: end: 20120401
  4. WELLBUTRIN XL [Suspect]
     Indication: PRODUCT USED FOR UNKNOWN INDICATION
     Dosage: 300 mg daily
     Route: 064
     Dates: end: 20120401

REACTIONS (3)
  - Foetal exposure during pregnancy [Recovered/Resolved]
  - Adverse event [Recovered/Resolved]
  - Maternal drugs affecting foetus [None]
